FAERS Safety Report 7392522-9 (Version None)
Quarter: 2011Q1

REPORT INFORMATION
  Report Type: 
  Country: None (occurrence: None)
  Receive Date: 20110330
  Receipt Date: 20110330
  Transmission Date: 20110831
  Serious: Yes (Life-Threatening, Hospitalization)
  Sender: FDA-Public Use
  Company Number: None

PATIENT
  Age: 74 Year
  Sex: Male
  Weight: 70 kg

DRUGS (1)
  1. WARFARIN SODIUM [Suspect]
     Indication: ATRIAL FIBRILLATION
     Dosage: 2.86MG EVERY DAY PO
     Route: 048
     Dates: start: 20050228, end: 20110321

REACTIONS (5)
  - INTERNATIONAL NORMALISED RATIO INCREASED [None]
  - ANAEMIA [None]
  - HAEMATOCHEZIA [None]
  - GASTRIC HAEMORRHAGE [None]
  - MELAENA [None]
